FAERS Safety Report 24550970 (Version 2)
Quarter: 2025Q2

REPORT INFORMATION
  Report Type: Spontaneous
  Country: US (occurrence: US)
  Receive Date: 20241025
  Receipt Date: 20250404
  Transmission Date: 20250717
  Serious: Yes (Life-Threatening)
  Sender: LOREAL
  Company Number: US-L^OREAL USA PRODUCTS, INC.-2024LOR00043

PATIENT

DRUGS (1)
  1. LA ROCHE POSAY EFFACLAR DERMATOLOGICAL ACNE SYSTEM 3 STEP ACNE ROUTINE [Suspect]
     Active Substance: BENZOYL PEROXIDE\SALICYLIC ACID
     Dates: start: 2024, end: 202409

REACTIONS (3)
  - Urticaria [Recovered/Resolved]
  - Skin erosion [Recovered/Resolved]
  - Swelling [Recovered/Resolved]

NARRATIVE: CASE EVENT DATE: 20240901
